FAERS Safety Report 14858429 (Version 1)
Quarter: 2018Q2

REPORT INFORMATION
  Report Type: Spontaneous
  Country: US (occurrence: US)
  Receive Date: 20180508
  Receipt Date: 20180508
  Transmission Date: 20180711
  Serious: No
  Sender: FDA-Public Use
  Company Number: US-TAKEDA-2018MPI004578

PATIENT
  Sex: Male

DRUGS (4)
  1. FLAXSEED [Concomitant]
     Active Substance: FLAX SEED
  2. NALTREXONE [Concomitant]
     Active Substance: NALTREXONE
  3. CURCUMIN 95 [Concomitant]
  4. NINLARO [Suspect]
     Active Substance: IXAZOMIB CITRATE
     Indication: PLASMA CELL MYELOMA
     Dosage: 4 MG, 1/WEEK
     Route: 048
     Dates: start: 20170915

REACTIONS (1)
  - Drug ineffective [Unknown]
